FAERS Safety Report 16483192 (Version 2)
Quarter: 2019Q3

REPORT INFORMATION
  Report Type: Spontaneous
  Country: US (occurrence: US)
  Receive Date: 20190627
  Receipt Date: 20190715
  Transmission Date: 20191004
  Serious: Yes (Hospitalization, Other)
  Sender: FDA-Public Use
  Company Number: US-AKORN PHARMACEUTICALS-2019AKN01336

PATIENT
  Age: 16 Year
  Sex: Female
  Weight: 67.6 kg

DRUGS (5)
  1. MYORISAN [Suspect]
     Active Substance: ISOTRETINOIN
     Dosage: 60 MG
     Route: 048
     Dates: start: 20190514, end: 20190606
  2. KELNOR 1/35 [Concomitant]
     Active Substance: ETHINYL ESTRADIOL\ETHYNODIOL DIACETATE
  3. MYORISAN [Suspect]
     Active Substance: ISOTRETINOIN
     Indication: ACNE
     Dosage: 30 MG 1X/DAY
     Dates: start: 20190227
  4. CLARAVIS [Suspect]
     Active Substance: ISOTRETINOIN
     Dosage: 40 MG
     Dates: start: 20190402, end: 2019
  5. SPIRONOLACTONE. [Concomitant]
     Active Substance: SPIRONOLACTONE
     Dosage: 100 MG, 1X/DAY

REACTIONS (20)
  - Anxiety [Recovering/Resolving]
  - Stress [Recovering/Resolving]
  - Anger [Recovering/Resolving]
  - Impulsive behaviour [Unknown]
  - Off label use [Recovered/Resolved]
  - Abdominal pain upper [Unknown]
  - Somnolence [Unknown]
  - Affective disorder [Recovering/Resolving]
  - Apathy [Unknown]
  - Major depression [Recovering/Resolving]
  - Insomnia [Recovering/Resolving]
  - Irritability [Recovering/Resolving]
  - Suicidal ideation [Recovered/Resolved]
  - Attention-seeking behaviour [Recovered/Resolved]
  - Affect lability [Recovering/Resolving]
  - Disturbance in attention [Unknown]
  - Frustration tolerance decreased [Recovering/Resolving]
  - Crying [Recovering/Resolving]
  - Weight increased [Recovering/Resolving]
  - Performance status decreased [Unknown]

NARRATIVE: CASE EVENT DATE: 2019
